FAERS Safety Report 20587841 (Version 1)
Quarter: 2022Q1

REPORT INFORMATION
  Report Type: Other
  Country: US (occurrence: None)
  Receive Date: 20220314
  Receipt Date: 20220314
  Transmission Date: 20220423
  Serious: Yes (Death)
  Sender: FDA-Public Use
  Company Number: US-ROCHE-3048954

PATIENT
  Age: 65 Year
  Sex: Male

DRUGS (4)
  1. AVASTIN [Suspect]
     Active Substance: BEVACIZUMAB
     Indication: Malignant neoplasm of unknown primary site
     Dosage: INFUSE 750MG INTRAVENOUSLY EVERY 2 WEEK(S)
     Route: 042
  2. AVASTIN [Suspect]
     Active Substance: BEVACIZUMAB
     Indication: Head and neck cancer
  3. KEYTRUDA [Concomitant]
     Active Substance: PEMBROLIZUMAB
  4. SPRYCEL [Concomitant]
     Active Substance: DASATINIB

REACTIONS (1)
  - Death [Fatal]

NARRATIVE: CASE EVENT DATE: 20220203
